FAERS Safety Report 4721623-6 (Version None)
Quarter: 2005Q3

REPORT INFORMATION
  Report Type: 
  Country: None (occurrence: None)
  Receive Date: 20050721
  Receipt Date: 20050113
  Transmission Date: 20060218
  Serious: No
  Sender: FDA-Public Use
  Company Number: US-BRISTOL-MYERS SQUIBB COMPANY-12823936

PATIENT
  Age: 84 Year
  Sex: Female
  Weight: 57 kg

DRUGS (11)
  1. COUMADIN [Suspect]
     Dosage: DURATION OF THERAPY:  ^3-4 YEARS^;  DOSE REGIMENT:  1.5MG, 1.5MG, 2MG, THEN REPEAT
  2. LIPITOR [Concomitant]
  3. FOLIC ACID [Concomitant]
  4. SYNTHROID [Concomitant]
  5. DIOVAN [Concomitant]
  6. DILTIAZEM HCL [Concomitant]
  7. CALCIUM+MAGNESIUM+VITAMIN D [Concomitant]
  8. DOCUSATE SODIUM [Concomitant]
  9. ASPIRIN [Concomitant]
  10. ZETIA [Concomitant]
  11. ASCORBIC ACID [Concomitant]

REACTIONS (1)
  - INTERNATIONAL NORMALISED RATIO INCREASED [None]
